APPROVED DRUG PRODUCT: SOTRADECOL
Active Ingredient: SODIUM TETRADECYL SULFATE
Strength: 20MG/2ML (10MG/ML)
Dosage Form/Route: INJECTABLE;INJECTION
Application: A040541 | Product #001
Applicant: MYLAN INSTITUTIONAL LLC
Approved: Nov 12, 2004 | RLD: No | RS: Yes | Type: RX